FAERS Safety Report 5890276-6 (Version None)
Quarter: 2008Q3

REPORT INFORMATION
  Report Type: 
  Country: None (occurrence: None)
  Receive Date: 20080919
  Receipt Date: 20080908
  Transmission Date: 20090109
  Serious: Yes (Other)
  Sender: FDA-Public Use
  Company Number: US-PFIZER INC-2008078450

PATIENT
  Sex: Female
  Weight: 72.6 kg

DRUGS (10)
  1. LIPITOR [Suspect]
     Dates: end: 20060501
  2. INDERAL [Concomitant]
  3. AMBIEN [Concomitant]
  4. CYMBALTA [Concomitant]
  5. RELAFEN [Concomitant]
  6. IMITREX [Concomitant]
  7. MULTI-VITAMINS [Concomitant]
  8. VITAMIN E [Concomitant]
  9. VITAMIN B COMPLEX CAP [Concomitant]
  10. DARVOCET-N 100 [Concomitant]

REACTIONS (4)
  - ASTHENIA [None]
  - MUSCLE INJURY [None]
  - MUSCULAR WEAKNESS [None]
  - PAIN IN EXTREMITY [None]
